FAERS Safety Report 8171380 (Version 7)
Quarter: 2012Q4

REPORT INFORMATION
  Report Type: Report from Study
  Country: US (occurrence: US)
  Receive Date: 20111006
  Receipt Date: 20121127
  Transmission Date: 20130627
  Serious: Yes (Hospitalization, Congenital Anomaly, Other)
  Sender: FDA-Public Use
  Company Number: US-PFIZER INC-2011231358

PATIENT
  Age: 3 Month
  Sex: Female

DRUGS (9)
  1. ENBREL [Suspect]
     Indication: PSORIATIC ARTHRITIS
     Dosage: 50 mg, qwk
     Route: 064
     Dates: start: 20091230, end: 20100114
  2. ENBREL [Suspect]
     Indication: PSORIASIS
  3. ZITHROMAX [Suspect]
     Indication: EAR INFECTION
  4. PRENATAL VITAMINS [Suspect]
     Dosage: UNK UNK, qd
     Route: 064
     Dates: start: 20091230, end: 20100825
  5. YAZ [Suspect]
     Indication: BIRTH CONTROL
     Dosage: UNK UNK, qd
     Route: 064
     Dates: start: 20091126, end: 20100112
  6. TYLENOL [Suspect]
     Indication: PSORIATIC ARTHRITIS
     Dosage: UNK UNK, prn
     Route: 064
     Dates: start: 20100114, end: 20100430
  7. TYLENOL [Suspect]
     Indication: HEADACHE
  8. FISH OIL [Suspect]
     Dosage: UNK UNK, qd
     Route: 064
     Dates: start: 20100416
  9. TERBUTALINE [Suspect]
     Indication: PREMATURE LABOR
     Dosage: 30 mg, qd
     Route: 064
     Dates: start: 20100506

REACTIONS (10)
  - Maternal exposure timing unspecified [Unknown]
  - Respiratory arrest [Unknown]
  - Bronchomalacia [Unknown]
  - Cyanosis [Unknown]
  - Burns second degree [Unknown]
  - Respiratory syncytial virus infection [Unknown]
  - Ear infection [Unknown]
  - Laryngeal stenosis [Unknown]
  - Developmental delay [Unknown]
  - Cytogenetic abnormality [Unknown]
